FAERS Safety Report 4656187-9 (Version None)
Quarter: 2005Q2

REPORT INFORMATION
  Report Type: 
  Country: None (occurrence: None)
  Receive Date: 20050509
  Receipt Date: 20050128
  Transmission Date: 20051028
  Serious: No
  Sender: FDA-Public Use
  Company Number: US-GLAXOSMITHKLINE-A0542877A

PATIENT
  Age: 62 Year
  Sex: Male

DRUGS (7)
  1. AVANDAMET [Suspect]
     Dosage: 1TAB PER DAY
     Route: 048
     Dates: start: 20041201
  2. INSULIN [Concomitant]
  3. COZAAR [Concomitant]
  4. PRECOSE [Concomitant]
  5. TOPROL-XL [Concomitant]
  6. UNKNOWN MEDICATION [Concomitant]
  7. PLAVIX [Concomitant]

REACTIONS (2)
  - BLOOD TRIGLYCERIDES INCREASED [None]
  - FLATULENCE [None]
